FAERS Safety Report 24776830 (Version 2)
Quarter: 2025Q1

REPORT INFORMATION
  Report Type: Spontaneous
  Country: US (occurrence: US)
  Receive Date: 20241226
  Receipt Date: 20250107
  Transmission Date: 20250409
  Serious: Yes (Life-Threatening, Hospitalization)
  Sender: TEVA
  Company Number: US-TEVA-VS-3277115

PATIENT
  Age: 82 Year
  Sex: Female

DRUGS (1)
  1. IVERMECTIN [Suspect]
     Active Substance: IVERMECTIN
     Indication: COVID-19
     Route: 065

REACTIONS (17)
  - Headache [Unknown]
  - Fibrin D dimer increased [Unknown]
  - Dizziness [Unknown]
  - Toxicity to various agents [Unknown]
  - Nausea [Unknown]
  - Drug ineffective for unapproved indication [Unknown]
  - Neurological decompensation [Unknown]
  - Asthenia [Unknown]
  - Decreased appetite [Unknown]
  - Hypotension [Unknown]
  - Aspartate aminotransferase increased [Unknown]
  - Alanine aminotransferase increased [Unknown]
  - Brain injury [Unknown]
  - Unresponsive to stimuli [Unknown]
  - Vomiting [Unknown]
  - Anxiety [Unknown]
  - Glomerular filtration rate decreased [Unknown]
